FAERS Safety Report 24773356 (Version 2)
Quarter: 2025Q3

REPORT INFORMATION
  Report Type: Report from Study
  Country: US (occurrence: US)
  Receive Date: 20241225
  Receipt Date: 20250802
  Transmission Date: 20251021
  Serious: Yes (Hospitalization, Other)
  Sender: ALEXION PHARMACEUTICALS
  Company Number: US-AstraZeneca-CH-00771866A

PATIENT
  Sex: Female

DRUGS (2)
  1. OLAPARIB [Suspect]
     Active Substance: OLAPARIB
     Indication: Fallopian tube cancer
     Dosage: 300 MILLIGRAM, BID
     Dates: start: 202410
  2. OLAPARIB [Suspect]
     Active Substance: OLAPARIB
     Dosage: 150 MILLIGRAM, BID

REACTIONS (5)
  - Abdominal pain upper [Unknown]
  - Urinary tract infection [Unknown]
  - Thrombosis [Unknown]
  - Muscle spasms [Unknown]
  - Abdominal distension [Unknown]
